FAERS Safety Report 5268558-0 (Version None)
Quarter: 2007Q1

REPORT INFORMATION
  Report Type: 
  Country: None (occurrence: None)
  Receive Date: 20070313
  Receipt Date: 20070308
  Transmission Date: 20070707
  Serious: Yes (Other)
  Sender: FDA-Public Use
  Company Number: 230981

PATIENT
  Age: 28 Year
  Sex: Female

DRUGS (3)
  1. RITUXAN [Suspect]
     Indication: IDIOPATHIC THROMBOCYTOPENIC PURPURA
     Dosage: 600 MG, 1/WEEK, INTRAVENOUS
     Route: 042
     Dates: start: 20050804
  2. IMMUNE GLOBULIN (GLOBULIN, IMMUNE) [Concomitant]
  3. PREDNISOLOLNE (PREDNISOLONE) [Concomitant]

REACTIONS (4)
  - ABORTION INDUCED [None]
  - DRUG EXPOSURE DURING PREGNANCY [None]
  - PLATELET COUNT DECREASED [None]
  - PREGNANCY [None]
